FAERS Safety Report 4717875-9 (Version None)
Quarter: 2005Q3

REPORT INFORMATION
  Report Type: 
  Country: None (occurrence: None)
  Receive Date: 20050718
  Receipt Date: 20050718
  Transmission Date: 20060218
  Serious: Yes (Hospitalization)
  Sender: FDA-Public Use
  Company Number: None

PATIENT
  Age: 56 Year
  Sex: Male

DRUGS (2)
  1. FLUOXETINE [Suspect]
     Dosage: 20MG PO QD
     Route: 048
     Dates: start: 20050216, end: 20050410
  2. OMEPRAZOLE [Concomitant]

REACTIONS (1)
  - BLOOD SODIUM DECREASED [None]
